FAERS Safety Report 9772480 (Version 1)
Quarter: 2013Q4

REPORT INFORMATION
  Report Type: Spontaneous
  Country: GB (occurrence: None)
  Receive Date: 20131217
  Receipt Date: 20131217
  Transmission Date: 20140711
  Serious: Yes (Death)
  Sender: FDA-Public Use
  Company Number: SYM-2013-13876

PATIENT
  Age: 86 Year
  Sex: Female

DRUGS (1)
  1. METRONIDAZOLE (METRONIDAZOLE) (METRONIDAZOLE) [Suspect]
     Indication: ABDOMINAL INFECTION
     Dosage: (NOT OTHERWISE SPECIFIED)
     Route: 042
     Dates: start: 20131025, end: 20131025

REACTIONS (5)
  - Anaphylactic shock [None]
  - Lactic acidosis [None]
  - Hypovolaemic shock [None]
  - Drug administration error [None]
  - Infusion related reaction [None]
